FAERS Safety Report 5935616-4 (Version None)
Quarter: 2008Q4

REPORT INFORMATION
  Report Type: 
  Country: None (occurrence: None)
  Receive Date: 20081030
  Receipt Date: 20081028
  Transmission Date: 20090506
  Serious: Yes (Hospitalization)
  Sender: FDA-Public Use
  Company Number: B0544090A

PATIENT
  Age: 69 Year
  Sex: Female

DRUGS (6)
  1. RYTMONORM [Suspect]
     Indication: ATRIAL FIBRILLATION
     Dosage: 850MG PER DAY
     Route: 048
     Dates: start: 20080501, end: 20081008
  2. ESTRADIOL [Suspect]
     Dosage: 25MCG PER DAY
     Route: 062
     Dates: start: 20051001, end: 20081008
  3. UNKNOWN DRUG [Concomitant]
  4. DOXAZOSIN MESYLATE [Concomitant]
  5. SPIRONOLACTONE [Concomitant]
  6. MEDROXYPROGESTERONE ACETATE [Concomitant]

REACTIONS (7)
  - ASTHENIA [None]
  - COLD SWEAT [None]
  - DYSPNOEA [None]
  - HEART RATE ABNORMAL [None]
  - HEPATITIS CHOLESTATIC [None]
  - PRESYNCOPE [None]
  - SYNCOPE [None]
